FAERS Safety Report 6938341-6 (Version None)
Quarter: 2010Q3

REPORT INFORMATION
  Report Type: 
  Country: None (occurrence: None)
  Receive Date: 20100824
  Receipt Date: 20100812
  Transmission Date: 20110219
  Serious: Yes (Hospitalization, Other)
  Sender: FDA-Public Use
  Company Number: US-PFIZER INC-2010076961

PATIENT
  Sex: Female

DRUGS (7)
  1. CHANTIX [Suspect]
     Indication: SMOKING CESSATION THERAPY
     Dosage: 0.5MG/1MG
     Dates: start: 20080401, end: 20080521
  2. AVELOX [Concomitant]
     Indication: INFECTION
     Dosage: UNK
     Dates: start: 19900101, end: 20090101
  3. AVELOX [Concomitant]
     Indication: SINUSITIS
  4. LEVAQUIN [Concomitant]
     Indication: INFECTION
     Dosage: UNK
     Dates: start: 19900101, end: 20090101
  5. LEVAQUIN [Concomitant]
     Indication: SINUSITIS
  6. PROPOXYPHENE HCL [Concomitant]
     Indication: PAIN
     Dosage: UNK
     Dates: start: 20040101, end: 20090101
  7. IBUPROFEN [Concomitant]
     Indication: PAIN
     Dosage: 800 MG, UNK
     Dates: start: 20040101, end: 20090101

REACTIONS (5)
  - ABNORMAL BEHAVIOUR [None]
  - ANXIETY [None]
  - BIPOLAR DISORDER [None]
  - DEPRESSION [None]
  - PSYCHOTIC DISORDER [None]
